FAERS Safety Report 5091988-7 (Version None)
Quarter: 2006Q3

REPORT INFORMATION
  Report Type: 
  Country: None (occurrence: None)
  Receive Date: 20060824
  Receipt Date: 20060820
  Transmission Date: 20061208
  Serious: Yes (Hospitalization)
  Sender: FDA-Public Use
  Company Number: THQ2006A00779

PATIENT
  Age: 33 Year
  Sex: Female

DRUGS (5)
  1. LANSOPRAZOLE [Suspect]
     Dosage: PER ORAL
     Route: 048
  2. EFFEXOR [Suspect]
     Indication: DEPRESSION
     Dosage: 75 MG (1 D) PER ORAL
     Route: 048
     Dates: start: 20020307, end: 20021201
  3. CITALOPRAM HYDROBROMIDE [Concomitant]
  4. PULMICORT [Concomitant]
  5. CLARITIN [Concomitant]

REACTIONS (2)
  - HAEMATOCHEZIA [None]
  - PROCTITIS ULCERATIVE [None]
